FAERS Safety Report 12349546 (Version 2)
Quarter: 2017Q2

REPORT INFORMATION
  Report Type: Spontaneous
  Country: US (occurrence: US)
  Receive Date: 20160510
  Receipt Date: 20170626
  Transmission Date: 20170830
  Serious: No
  Sender: FDA-Public Use
  Company Number: US-AMGEN-USASP2016057378

PATIENT
  Sex: Female

DRUGS (2)
  1. ENBREL [Suspect]
     Active Substance: ETANERCEPT
     Indication: PSORIATIC ARTHROPATHY
     Dosage: 50 MG, QWK
     Route: 065
     Dates: start: 2014
  2. ENBREL [Suspect]
     Active Substance: ETANERCEPT
     Indication: DIABETES MELLITUS

REACTIONS (10)
  - Accidental exposure to product [Unknown]
  - Malaise [Unknown]
  - Injection site haemorrhage [Unknown]
  - Feeling abnormal [Not Recovered/Not Resolved]
  - Needle issue [Unknown]
  - Injection site mass [Unknown]
  - Injection site swelling [Unknown]
  - Injection site pain [Unknown]
  - Device leakage [Unknown]
  - Underdose [Unknown]
